FAERS Safety Report 8479406-X (Version None)
Quarter: 2012Q2

REPORT INFORMATION
  Report Type: 
  Country: None (occurrence: None)
  Receive Date: 20120629
  Receipt Date: 20120625
  Transmission Date: 20120825
  Serious: Yes (Other)
  Sender: FDA-Public Use
  Company Number: US-CELGENEUS-163-21880-12020905

PATIENT
  Sex: Male
  Weight: 72.186 kg

DRUGS (4)
  1. REVLIMID [Suspect]
     Dosage: 5 MILLIGRAM
     Route: 048
     Dates: start: 20100701
  2. EXJADE [Concomitant]
     Dosage: 1500 MILLIGRAM
     Route: 048
     Dates: start: 20070309
  3. REVLIMID [Suspect]
     Dosage: 2.5 MILLIGRAM
     Route: 048
     Dates: start: 20120601
  4. REVLIMID [Suspect]
     Indication: MYELODYSPLASTIC SYNDROME
     Dosage: 10 MILLIGRAM
     Route: 048
     Dates: start: 20061009

REACTIONS (3)
  - HERNIA [None]
  - DYSPEPSIA [None]
  - PLATELET COUNT DECREASED [None]
